FAERS Safety Report 19938169 (Version 1)
Quarter: 2021Q4

REPORT INFORMATION
  Report Type: Report from Study
  Country: None (occurrence: US)
  Receive Date: 20211011
  Receipt Date: 20211011
  Transmission Date: 20220303
  Serious: Yes (Other)
  Sender: FDA-Public Use
  Company Number: US-ABBVIE-21K-163-4104881-00

PATIENT
  Age: 57 Year
  Sex: Female

DRUGS (20)
  1. IMBRUVICA [Suspect]
     Active Substance: IBRUTINIB
     Indication: Mantle cell lymphoma
     Dosage: HELD FROM 08 AUG 2021 TILL 10 SEP 2021.
     Route: 048
     Dates: start: 20210702, end: 20210808
  2. IMBRUVICA [Suspect]
     Active Substance: IBRUTINIB
     Route: 048
     Dates: start: 20210910
  3. MILK OF MAGNESIA [Concomitant]
     Active Substance: MAGNESIUM HYDROXIDE
     Indication: Product used for unknown indication
  4. IMODIUM A-D [Concomitant]
     Active Substance: LOPERAMIDE HYDROCHLORIDE
     Indication: Product used for unknown indication
  5. RITUXAN [Concomitant]
     Active Substance: RITUXIMAB
     Indication: Product used for unknown indication
  6. XANAX [Concomitant]
     Active Substance: ALPRAZOLAM
     Indication: Product used for unknown indication
  7. VORICONAZOLE [Concomitant]
     Active Substance: VORICONAZOLE
     Indication: Product used for unknown indication
  8. VALACYCLOVIR HYDROCHLORIDE [Concomitant]
     Active Substance: VALACYCLOVIR HYDROCHLORIDE
     Indication: Product used for unknown indication
  9. PROTONIX [Concomitant]
     Active Substance: PANTOPRAZOLE SODIUM
     Indication: Product used for unknown indication
  10. ONDANSETRON [Concomitant]
     Active Substance: ONDANSETRON
     Indication: Product used for unknown indication
  11. OLANZAPINE [Concomitant]
     Active Substance: OLANZAPINE
     Indication: Product used for unknown indication
  12. NEUPOGEN [Concomitant]
     Active Substance: FILGRASTIM
     Indication: Product used for unknown indication
  13. NEULASTA [Concomitant]
     Active Substance: PEGFILGRASTIM
     Indication: Product used for unknown indication
  14. MIRALAX [Concomitant]
     Active Substance: POLYETHYLENE GLYCOL 3350
     Indication: Product used for unknown indication
  15. METOPROLOL TARTRATE [Concomitant]
     Active Substance: METOPROLOL TARTRATE
     Indication: Product used for unknown indication
  16. LASIX [Concomitant]
     Active Substance: FUROSEMIDE
     Indication: Product used for unknown indication
  17. PROCHLORPERAZINE MALEATE [Concomitant]
     Active Substance: PROCHLORPERAZINE MALEATE
     Indication: Product used for unknown indication
  18. BACTRIM DS [Concomitant]
     Active Substance: SULFAMETHOXAZOLE\TRIMETHOPRIM
     Indication: Product used for unknown indication
  19. ARANESP [Concomitant]
     Active Substance: DARBEPOETIN ALFA
     Indication: Product used for unknown indication
  20. ALLOPURINOL [Concomitant]
     Active Substance: ALLOPURINOL
     Indication: Product used for unknown indication

REACTIONS (4)
  - Cholecystectomy [Unknown]
  - Stent placement [Unknown]
  - Medical device site discharge [Unknown]
  - Post procedural complication [Unknown]

NARRATIVE: CASE EVENT DATE: 20210819
